FAERS Safety Report 4364462-0 (Version None)
Quarter: 2004Q2

REPORT INFORMATION
  Report Type: 
  Country: None (occurrence: None)
  Receive Date: 20040525
  Receipt Date: 20040513
  Transmission Date: 20050107
  Serious: Yes (Hospitalization)
  Sender: FDA-Public Use
  Company Number: US-GLAXOSMITHKLINE-B0332636A

PATIENT
  Age: 73 Year
  Sex: Male
  Weight: 114 kg

DRUGS (3)
  1. ROSIGLITAZONE MALEATE [Suspect]
     Indication: INSULIN RESISTANCE
     Dosage: 2MG TWICE PER DAY
     Route: 048
     Dates: start: 20000701, end: 20010201
  2. NPH INSULIN [Concomitant]
     Route: 058
  3. REGULAR INSULIN [Concomitant]
     Route: 058

REACTIONS (10)
  - BLOOD GLUCOSE INCREASED [None]
  - CARDIAC FAILURE CONGESTIVE [None]
  - CREPITATIONS [None]
  - DYSPNOEA [None]
  - DYSPNOEA PAROXYSMAL NOCTURNAL [None]
  - GLYCOSYLATED HAEMOGLOBIN INCREASED [None]
  - OEDEMA PERIPHERAL [None]
  - PNEUMONIA [None]
  - VENTRICULAR HYPERTROPHY [None]
  - WEIGHT INCREASED [None]
